FAERS Safety Report 7546100-9 (Version None)
Quarter: 2011Q2

REPORT INFORMATION
  Report Type: 
  Country: None (occurrence: None)
  Receive Date: 20110614
  Receipt Date: 20110606
  Transmission Date: 20111010
  Serious: Yes (Other)
  Sender: FDA-Public Use
  Company Number: PHHY2011BR51596

PATIENT
  Sex: Female

DRUGS (2)
  1. BUDESONIDE [Suspect]
     Dosage: 400 MCG
     Route: 064
  2. FORMOTEROL FUMARATE [Suspect]
     Dosage: 12/400 MCG
     Route: 064

REACTIONS (2)
  - DRUG EXPOSURE BEFORE PREGNANCY [None]
  - PREMATURE BABY [None]
